FAERS Safety Report 4431358-5 (Version None)
Quarter: 2004Q3

REPORT INFORMATION
  Report Type: 
  Country: None (occurrence: None)
  Receive Date: 20040820
  Receipt Date: 20040811
  Transmission Date: 20050211
  Serious: Yes (Other)
  Sender: FDA-Public Use
  Company Number: CEL-2004-01573-ROC

PATIENT
  Age: 55 Year
  Sex: Female

DRUGS (5)
  1. IONAMIN [Suspect]
     Indication: ANOREXIA
     Dosage: 30MG DAILY PO
     Route: 048
     Dates: start: 20040712, end: 20040730
  2. METFORMIN HCL [Concomitant]
  3. GLYBURIDE [Concomitant]
  4. DIOVAN [Concomitant]
  5. ZOCOR [Concomitant]

REACTIONS (1)
  - BLOOD GLUCOSE INCREASED [None]
